FAERS Safety Report 7003463-0 (Version None)
Quarter: 2010Q3

REPORT INFORMATION
  Report Type: 
  Country: None (occurrence: None)
  Receive Date: 20100920
  Receipt Date: 20100915
  Transmission Date: 20110219
  Serious: No
  Sender: FDA-Public Use
  Company Number: US-PFIZER INC-2010117178

PATIENT
  Sex: Male

DRUGS (4)
  1. DEPO-TESTOSTERONE [Suspect]
     Indication: BLOOD TESTOSTERONE DECREASED
     Dosage: 1 CC INJECTION, ONCE A WEEK
     Dates: start: 20100101, end: 20100101
  2. DEPO-TESTOSTERONE [Suspect]
     Dosage: 0.5 CC TWO TIMES IN A WEEK ON MONDAYS AND THURSDAYS
     Dates: start: 20100101
  3. ALBUTEROL [Concomitant]
     Indication: ASTHMA
     Dosage: UNK
  4. SYMBICORT [Concomitant]
     Indication: ASTHMA
     Dosage: UNK

REACTIONS (1)
  - ACNE [None]
